FAERS Safety Report 17362527 (Version 1)
Quarter: 2020Q1

REPORT INFORMATION
  Report Type: Spontaneous
  Country: US (occurrence: US)
  Receive Date: 20200203
  Receipt Date: 20200203
  Transmission Date: 20200409
  Serious: Yes (Hospitalization, Other)
  Sender: FDA-Public Use
  Company Number: US-EPIC PHARMA LLC-2020EPC00031

PATIENT
  Age: 74 Year
  Sex: Female

DRUGS (2)
  1. BUPIVACAINE. [Suspect]
     Active Substance: BUPIVACAINE
     Indication: PAIN
     Dosage: 35 MG/ML [1750 MG]
     Route: 037
  2. MORPHINE SULFATE. [Suspect]
     Active Substance: MORPHINE SULFATE
     Indication: PAIN
     Dosage: 10 MG/ML [500 MG]
     Route: 037

REACTIONS (9)
  - Status epilepticus [Recovered/Resolved]
  - Respiratory depression [Recovered/Resolved]
  - Hypertension [Recovered/Resolved]
  - Device malfunction [Recovered/Resolved]
  - Hypotension [Recovered/Resolved]
  - Tachycardia [Recovered/Resolved]
  - Encephalopathy [Recovered/Resolved]
  - Sensory loss [Recovered/Resolved]
  - Toxicity to various agents [Recovered/Resolved]
